APPROVED DRUG PRODUCT: ROFLUMILAST
Active Ingredient: ROFLUMILAST
Strength: 500MCG
Dosage Form/Route: TABLET;ORAL
Application: A208257 | Product #001 | TE Code: AB
Applicant: PHARMOBEDIENT CONSULTING LLC
Approved: Jul 13, 2018 | RLD: No | RS: No | Type: RX